FAERS Safety Report 8509495-5 (Version None)
Quarter: 2012Q3

REPORT INFORMATION
  Report Type: 
  Country: None (occurrence: None)
  Receive Date: 20120713
  Receipt Date: 20120704
  Transmission Date: 20120928
  Serious: Yes (Death, Disabling)
  Sender: FDA-Public Use
  Company Number: AT-VERTEX PHARMACEUTICALS INC.-000000000000001053

PATIENT
  Age: 36 Year
  Sex: Male

DRUGS (3)
  1. PEG-INTRON [Concomitant]
     Indication: HEPATITIS C
     Dosage: DOSAGE FORM: INJECTION
     Route: 058
     Dates: start: 20110401, end: 20120510
  2. ERYPO [Concomitant]
     Indication: ANAEMIA
     Dosage: DOSAGE FORM: INJECTION
     Route: 058
     Dates: start: 20110401, end: 20110401
  3. INCIVO [Suspect]
     Indication: HEPATITIS C
     Dosage: DOSAGE FORM: TABLET
     Route: 065
     Dates: start: 20120223, end: 20120510

REACTIONS (1)
  - SEPSIS [None]
